FAERS Safety Report 20635546 (Version 1)
Quarter: 2022Q1

REPORT INFORMATION
  Report Type: Report from Study
  Country: DE (occurrence: DE)
  Receive Date: 20220325
  Receipt Date: 20220325
  Transmission Date: 20220424
  Serious: Yes (Hospitalization)
  Sender: FDA-Public Use
  Company Number: DE-ABBVIE-22K-062-4328521-00

PATIENT
  Age: 14 Year
  Sex: Female

DRUGS (2)
  1. HUMIRA [Suspect]
     Active Substance: ADALIMUMAB
     Indication: Colitis ulcerative
     Route: 058
     Dates: start: 20220125, end: 20220222
  2. COVID-19 VACCINE NOS [Suspect]
     Active Substance: COVID-19 VACCINE NOS
     Indication: COVID-19 immunisation
     Dosage: BOOSTER DOSE
     Route: 030

REACTIONS (16)
  - Weight decreased [Not Recovered/Not Resolved]
  - Feeding tube user [Not Recovered/Not Resolved]
  - Dry skin [Not Recovered/Not Resolved]
  - Vaccination complication [Not Recovered/Not Resolved]
  - Amenorrhoea [Not Recovered/Not Resolved]
  - Decreased appetite [Not Recovered/Not Resolved]
  - Dizziness [Not Recovered/Not Resolved]
  - Malnutrition [Not Recovered/Not Resolved]
  - Skin disorder [Not Recovered/Not Resolved]
  - Skin fissures [Not Recovered/Not Resolved]
  - Eating disorder [Unknown]
  - Condition aggravated [Not Recovered/Not Resolved]
  - Ageusia [Not Recovered/Not Resolved]
  - Visual impairment [Not Recovered/Not Resolved]
  - Muscle spasms [Not Recovered/Not Resolved]
  - Nausea [Not Recovered/Not Resolved]

NARRATIVE: CASE EVENT DATE: 20220101
